FAERS Safety Report 22089313 (Version 2)
Quarter: 2024Q1

REPORT INFORMATION
  Report Type: Spontaneous
  Country: US (occurrence: US)
  Receive Date: 20230313
  Receipt Date: 20240304
  Transmission Date: 20240409
  Serious: No
  Sender: FDA-Public Use
  Company Number: US-PERRIGO-23US000867

PATIENT
  Age: 54 Year
  Sex: Male
  Weight: 122.45 kg

DRUGS (1)
  1. NICOTINE POLACRILEX [Suspect]
     Active Substance: NICOTINE
     Indication: Smoking cessation therapy
     Dosage: 4 MG, EVERY 1 TO 2 HOURS
     Route: 002
     Dates: start: 20230111, end: 20230118

REACTIONS (3)
  - Noninfective gingivitis [Not Recovered/Not Resolved]
  - Gingival pain [Recovered/Resolved]
  - Bruxism [Unknown]

NARRATIVE: CASE EVENT DATE: 20230101
